FAERS Safety Report 8575715-4 (Version None)
Quarter: 2012Q3

REPORT INFORMATION
  Report Type: 
  Country: None (occurrence: None)
  Receive Date: 20120807
  Receipt Date: 20120803
  Transmission Date: 20120928
  Serious: Yes (Other)
  Sender: FDA-Public Use
  Company Number: PHHY2012CA042394

PATIENT
  Sex: Male

DRUGS (1)
  1. SANDOSTATIN LAR [Suspect]
     Indication: CARCINOID TUMOUR OF THE STOMACH
     Dosage: 30 MG, QMO
     Route: 030
     Dates: start: 20091023

REACTIONS (3)
  - UNEVALUABLE EVENT [None]
  - BILIARY COLIC [None]
  - CHOLELITHIASIS [None]
